FAERS Safety Report 9217015 (Version 2)
Quarter: 2013Q3

REPORT INFORMATION
  Report Type: Spontaneous
  Country: US (occurrence: None)
  Receive Date: 20130403
  Receipt Date: 20130820
  Transmission Date: 20140515
  Serious: Yes (Hospitalization)
  Sender: FDA-Public Use
  Company Number: JPI-P-030772

PATIENT
  Age: 39 Year
  Sex: Female

DRUGS (2)
  1. XYREM [Suspect]
     Indication: CATAPLEXY
     Dosage: 4.5 GM (2.25 GM, 2 IN 1 D), ORAL
     Dates: start: 20060911
  2. FLUOXETINE HYDROCHLORIDE [Suspect]
     Indication: PRODUCT USED FOR UNKNOWN INDICATION
     Dates: end: 20130311

REACTIONS (10)
  - Serotonin syndrome [None]
  - Drug interaction [None]
  - Dyspnoea [None]
  - Cough [None]
  - Tremor [None]
  - Dry mouth [None]
  - Muscle spasms [None]
  - Tinnitus [None]
  - Blood pressure increased [None]
  - Anxiety [None]
